FAERS Safety Report 16984416 (Version 1)
Quarter: 2019Q4

REPORT INFORMATION
  Report Type: Spontaneous
  Country: US (occurrence: US)
  Receive Date: 20191101
  Receipt Date: 20191101
  Transmission Date: 20200122
  Serious: No
  Sender: FDA-Public Use
  Company Number: US-FARMAPROD-201908-1321

PATIENT
  Sex: Male

DRUGS (12)
  1. MULTIVITAMINS [Concomitant]
     Active Substance: VITAMINS
  2. VITAMIN E [Concomitant]
     Active Substance: .ALPHA.-TOCOPHEROL
  3. CALCIUM [Concomitant]
     Active Substance: CALCIUM
  4. OXERVATE [Suspect]
     Active Substance: CENEGERMIN-BKBJ
     Indication: NEUROTROPHIC KERATOPATHY
     Route: 047
  5. NORVASC [Concomitant]
     Active Substance: AMLODIPINE BESYLATE
  6. ULTRAM [Concomitant]
     Active Substance: TRAMADOL HYDROCHLORIDE
  7. CARAFATE [Concomitant]
     Active Substance: SUCRALFATE
  8. LYRICA [Concomitant]
     Active Substance: PREGABALIN
  9. ATORVASTATIN [Concomitant]
     Active Substance: ATORVASTATIN
  10. IRON [Concomitant]
     Active Substance: IRON
  11. METFORMIN [Concomitant]
     Active Substance: METFORMIN HYDROCHLORIDE
  12. AZOPT [Concomitant]
     Active Substance: BRINZOLAMIDE

REACTIONS (3)
  - Eye inflammation [Unknown]
  - Product quality issue [Unknown]
  - Product dose omission [Unknown]
